FAERS Safety Report 5467382-3 (Version None)
Quarter: 2007Q3

REPORT INFORMATION
  Report Type: 
  Country: None (occurrence: None)
  Receive Date: 20070925
  Receipt Date: 20070913
  Transmission Date: 20080115
  Serious: Yes (Other)
  Sender: FDA-Public Use
  Company Number: GB-PFIZER INC-2007074070

PATIENT
  Sex: Male
  Weight: 102 kg

DRUGS (3)
  1. CHAMPIX [Suspect]
     Indication: SMOKING CESSATION THERAPY
     Route: 048
  2. SERETIDE [Concomitant]
     Route: 055
  3. SALBUTAMOL [Concomitant]
     Route: 055

REACTIONS (3)
  - ANGER [None]
  - IRRITABILITY [None]
  - PHYSICAL ASSAULT [None]
